FAERS Safety Report 5211736-7 (Version None)
Quarter: 2007Q1

REPORT INFORMATION
  Report Type: 
  Country: None (occurrence: None)
  Receive Date: 20070118
  Receipt Date: 20070108
  Transmission Date: 20070707
  Serious: Yes (Hospitalization)
  Sender: FDA-Public Use
  Company Number: US-BRISTOL-MYERS SQUIBB COMPANY-13636436

PATIENT
  Age: 47 Year
  Sex: Male
  Weight: 81 kg

DRUGS (5)
  1. CETUXIMAB [Suspect]
     Indication: OESOPHAGEAL CARCINOMA
     Route: 042
     Dates: start: 20061107, end: 20061107
  2. OXALIPLATIN [Suspect]
     Indication: OESOPHAGEAL CARCINOMA
     Route: 042
     Dates: start: 20061107, end: 20061107
  3. RADIATION THERAPY [Suspect]
     Indication: OESOPHAGEAL CARCINOMA
  4. ZANTAC [Concomitant]
     Route: 048
  5. NEXIUM [Concomitant]
     Route: 048

REACTIONS (5)
  - DEHYDRATION [None]
  - DYSPHAGIA [None]
  - INTESTINAL OBSTRUCTION [None]
  - OESOPHAGEAL OBSTRUCTION [None]
  - POST PROCEDURAL HAEMORRHAGE [None]
